FAERS Safety Report 8009928-7 (Version None)
Quarter: 2011Q4

REPORT INFORMATION
  Report Type: 
  Country: None (occurrence: None)
  Receive Date: 20111228
  Receipt Date: 20111216
  Transmission Date: 20120403
  Serious: Yes (Other)
  Sender: FDA-Public Use
  Company Number: PHEH2011US011866

PATIENT
  Sex: Male

DRUGS (2)
  1. GLEEVEC [Suspect]
     Dosage: 400 MG, PER DAY
     Route: 065
  2. ATIVAN [Concomitant]
     Dosage: 100 MG, 2 A DAY
     Route: 065

REACTIONS (3)
  - DISCOMFORT [None]
  - BACK PAIN [None]
  - SPLENOMEGALY [None]
